FAERS Safety Report 7357181-X (Version None)
Quarter: 2011Q1

REPORT INFORMATION
  Report Type: 
  Country: None (occurrence: None)
  Receive Date: 20110317
  Receipt Date: 20110311
  Transmission Date: 20110831
  Serious: Yes (Hospitalization, Other)
  Sender: FDA-Public Use
  Company Number: US-PFIZER INC-2006069597

PATIENT
  Sex: Female

DRUGS (8)
  1. NEURONTIN [Suspect]
     Dosage: 1600MG PER DAY
     Dates: start: 19980710, end: 19981119
  2. NEURONTIN [Suspect]
     Dosage: 400MG 5-7 TABLETS PER DAY
     Dates: start: 19981224
  3. NEURONTIN [Suspect]
     Dosage: 400 MG, 2X/DAY
     Route: 065
     Dates: start: 19980306
  4. NEURONTIN [Suspect]
     Dosage: 400MG 5 TABLETS PER DAY
     Dates: start: 19990128
  5. NEURONTIN [Suspect]
     Dosage: 1200 MG, 3X/DAY
     Dates: start: 19990823, end: 19991018
  6. NEURONTIN [Suspect]
     Dosage: 2 GRAM PER DAY
     Dates: start: 19990325
  7. NEURONTIN [Suspect]
     Dosage: 1200MG PER DAY
     Dates: start: 19980611
  8. NEURONTIN [Suspect]
     Dosage: 800MG PER DAY
     Dates: start: 19980925

REACTIONS (1)
  - SUICIDE ATTEMPT [None]
